FAERS Safety Report 6769754-3 (Version None)
Quarter: 2010Q2

REPORT INFORMATION
  Report Type: 
  Country: None (occurrence: None)
  Receive Date: 20100615
  Receipt Date: 20100607
  Transmission Date: 20101027
  Serious: Yes (Hospitalization)
  Sender: FDA-Public Use
  Company Number: AU-ROCHE-707963

PATIENT
  Age: 81 Year
  Sex: Female

DRUGS (3)
  1. CAPECITABINE [Suspect]
     Indication: COLON CANCER STAGE III
     Route: 048
  2. FLUOROURACIL [Concomitant]
     Indication: CHEMOTHERAPY
     Route: 040
  3. FOLINIC ACID [Concomitant]
     Indication: CHEMOTHERAPY

REACTIONS (3)
  - CORONARY ARTERY DISEASE [None]
  - STRESS CARDIOMYOPATHY [None]
  - VENTRICULAR DYSFUNCTION [None]
